FAERS Safety Report 9627173 (Version 3)
Quarter: 2014Q2

REPORT INFORMATION
  Report Type: Spontaneous
  Country: US (occurrence: US)
  Receive Date: 20131016
  Receipt Date: 20140619
  Transmission Date: 20141212
  Serious: Yes (Other)
  Sender: FDA-Public Use
  Company Number: US-009507513-2011SP016577

PATIENT
  Sex: Female
  Weight: 59.88 kg

DRUGS (4)
  1. NUVARING [Suspect]
     Indication: CONTRACEPTION
     Dosage: 1 DF, QM
     Route: 067
     Dates: start: 200901, end: 20090515
  2. TEA [Concomitant]
     Indication: PRODUCT USED FOR UNKNOWN INDICATION
  3. NASONEX [Concomitant]
     Indication: HYPERSENSITIVITY
     Dosage: UNK UNK, QD
     Route: 055
     Dates: start: 20090405
  4. OLOPATADINE HYDROCHLORIDE [Concomitant]
     Indication: HYPERSENSITIVITY
     Dosage: UNK UNK, QD
     Route: 055
     Dates: start: 20090405

REACTIONS (10)
  - Deep vein thrombosis [Recovered/Resolved]
  - Thrombophlebitis [Recovered/Resolved]
  - Hypertension [Recovered/Resolved]
  - Contusion [Unknown]
  - Emotional disorder [Unknown]
  - Mental disorder [Unknown]
  - Back pain [Unknown]
  - Uterine dilation and curettage [Unknown]
  - Loop electrosurgical excision procedure [Unknown]
  - Endometrial ablation [Unknown]
